FAERS Safety Report 8209797-6 (Version None)
Quarter: 2012Q1

REPORT INFORMATION
  Report Type: 
  Country: None (occurrence: None)
  Receive Date: 20120314
  Receipt Date: 20120307
  Transmission Date: 20120608
  Serious: Yes (Hospitalization)
  Sender: FDA-Public Use
  Company Number: FR-PFIZER INC-2012060433

PATIENT
  Age: 38 Year
  Sex: Female

DRUGS (3)
  1. SULFADIAZINE [Suspect]
     Dosage: UNK
     Route: 048
     Dates: start: 20111223, end: 20120115
  2. CLINDAMYCIN HCL [Suspect]
     Dosage: UNK
     Route: 048
     Dates: start: 20111223, end: 20120102
  3. KEPPRA [Suspect]
     Dosage: UNK
     Route: 048
     Dates: start: 20111223, end: 20120123

REACTIONS (2)
  - CYTOLYTIC HEPATITIS [None]
  - RASH [None]
